FAERS Safety Report 9789071 (Version 2)
Quarter: 2014Q1

REPORT INFORMATION
  Report Type: Spontaneous
  Country: US (occurrence: US)
  Receive Date: 20131230
  Receipt Date: 20140110
  Transmission Date: 20141002
  Serious: No
  Sender: FDA-Public Use
  Company Number: US-009507513-1312USA010455

PATIENT
  Sex: 0

DRUGS (4)
  1. VICTRELIS [Suspect]
     Indication: HEPATITIS C
     Dosage: UNK
     Route: 048
  2. PEGINTERFERON ALFA-2A [Suspect]
     Dosage: UNK
  3. REBETOL [Suspect]
     Indication: HEPATITIS C
     Dosage: UNK
     Route: 048
  4. TACROLIMUS [Interacting]
     Indication: PROPHYLAXIS

REACTIONS (2)
  - Drug interaction [Unknown]
  - Drug level changed [Unknown]
